FAERS Safety Report 6787941-5 (Version None)
Quarter: 2010Q2

REPORT INFORMATION
  Report Type: 
  Country: None (occurrence: None)
  Receive Date: 20100623
  Receipt Date: 20071030
  Transmission Date: 20101027
  Serious: Yes (Other)
  Sender: FDA-Public Use
  Company Number: US-PFIZER INC-2007088019

PATIENT
  Sex: Female
  Weight: 91 kg

DRUGS (4)
  1. DEPO-PROVERA SUSPENSION/INJ [Suspect]
     Indication: CONTRACEPTION
     Dosage: FIRST INJECTION
     Dates: start: 20070911, end: 20070911
  2. BUPROPION HCL [Concomitant]
     Indication: DEPRESSION
  3. SALBUTAMOL [Concomitant]
  4. ZYRTEC [Concomitant]
     Indication: HYPERSENSITIVITY
     Dates: start: 20070601

REACTIONS (2)
  - DRUG INEFFECTIVE [None]
  - UNINTENDED PREGNANCY [None]
